FAERS Safety Report 8996308 (Version 1)
Quarter: 2013Q1

REPORT INFORMATION
  Report Type: Report from Study
  Country: IT (occurrence: IT)
  Receive Date: 20130103
  Receipt Date: 20130103
  Transmission Date: 20140127
  Serious: Yes (Hospitalization)
  Sender: FDA-Public Use
  Company Number: IT-BRISTOL-MYERS SQUIBB COMPANY-14858336

PATIENT
  Age: 79 Year
  Sex: Male

DRUGS (7)
  1. DASATINIB [Suspect]
     Indication: PROSTATE CANCER
     Dosage: INTERRUPTED ON 05NOV09
     Route: 048
     Dates: start: 20091006
  2. TAXOTERE [Suspect]
     Indication: PROSTATE CANCER
     Dosage: INTERRUPTED ON 27OCT09
     Route: 042
     Dates: start: 20091006
  3. PREDNISONE [Suspect]
     Indication: PROSTATE CANCER
     Dosage: INTERRUPTED ON 05NOV09
     Route: 048
     Dates: start: 20091006
  4. DEXAMETHASONE [Suspect]
     Indication: PREMEDICATION
  5. IRBESARTAN + HCTZ [Concomitant]
  6. ASA [Concomitant]
  7. RANITIDINE [Concomitant]
     Dates: start: 20091006

REACTIONS (1)
  - Respiratory failure [Recovered/Resolved]
